FAERS Safety Report 9351640 (Version 1)
Quarter: 2013Q2

REPORT INFORMATION
  Report Type: Spontaneous
  Country: US (occurrence: US)
  Receive Date: 20130617
  Receipt Date: 20130617
  Transmission Date: 20140414
  Serious: No
  Sender: FDA-Public Use
  Company Number: US-BAYER-2013-066791

PATIENT
  Sex: Female

DRUGS (1)
  1. STIVARGA [Suspect]
     Dosage: 220 MG DAILY (140 MG IN THE MORNING AND 80 MG IN THE EVENING)
     Dates: start: 201303, end: 20130508

REACTIONS (2)
  - Periorbital oedema [Unknown]
  - Prescribed overdose [None]
